FAERS Safety Report 10066534 (Version 2)
Quarter: 2014Q2

REPORT INFORMATION
  Report Type: Spontaneous
  Country: US (occurrence: US)
  Receive Date: 20140408
  Receipt Date: 20140507
  Transmission Date: 20141212
  Serious: Yes (Hospitalization)
  Sender: FDA-Public Use
  Company Number: US-LUNDBECK-DKLU1098945

PATIENT
  Age: 25 Year
  Sex: Female

DRUGS (6)
  1. ONFI [Suspect]
     Indication: EPILEPSY
     Route: 048
     Dates: start: 20131111
  2. ONFI [Suspect]
     Route: 048
  3. ONFI [Suspect]
     Route: 048
  4. CARBAMAZEPINE [Concomitant]
     Indication: PRODUCT USED FOR UNKNOWN INDICATION
  5. LEVETIRACETAM [Concomitant]
     Indication: PRODUCT USED FOR UNKNOWN INDICATION
  6. LEVETIRACETAM [Concomitant]

REACTIONS (1)
  - Convulsion [Recovered/Resolved]
